FAERS Safety Report 16956835 (Version 1)
Quarter: 2019Q4

REPORT INFORMATION
  Report Type: Spontaneous
  Country: US (occurrence: US)
  Receive Date: 20190905
  Receipt Date: 20190905
  Transmission Date: 20200122
  Serious: Yes (Other)
  Sender: FDA-Public Use
  Company Number: None

PATIENT
  Age: 46 Year
  Sex: Female
  Weight: 79.38 kg

DRUGS (6)
  1. ORGAIN COLLAGEN PROTEIN POWDER SUPPLEMEMT [Concomitant]
  2. MONTELUKAST SOD 10MG TABLET [Suspect]
     Active Substance: MONTELUKAST SODIUM
     Indication: ASTHMA
     Route: 048
     Dates: start: 20190802, end: 20190824
  3. IBUPROFEN. [Concomitant]
     Active Substance: IBUPROFEN
  4. ACETAMINOPHEN. [Concomitant]
     Active Substance: ACETAMINOPHEN
  5. MONTELUKAST SOD [Concomitant]
     Active Substance: MONTELUKAST SODIUM
  6. MONTELUKAST SOD 10MG TABLET [Suspect]
     Active Substance: MONTELUKAST SODIUM
     Indication: HYPERSENSITIVITY
     Route: 048
     Dates: start: 20190802, end: 20190824

REACTIONS (10)
  - Aggression [None]
  - Insomnia [None]
  - Flushing [None]
  - Abnormal behaviour [None]
  - Loss of consciousness [None]
  - Tinnitus [None]
  - Decreased appetite [None]
  - Asthenia [None]
  - Fatigue [None]
  - Dizziness [None]

NARRATIVE: CASE EVENT DATE: 20190823
